FAERS Safety Report 9642087 (Version 1)
Quarter: 2013Q4

REPORT INFORMATION
  Report Type: Spontaneous
  Country: DE (occurrence: DE)
  Receive Date: 20131023
  Receipt Date: 20131023
  Transmission Date: 20140711
  Serious: Yes (Disabling, Congenital Anomaly, Other)
  Sender: FDA-Public Use
  Company Number: GXKR2013DE003340

PATIENT
  Sex: 0

DRUGS (9)
  1. PREDNISOLONE [Suspect]
     Indication: IMMUNE THROMBOCYTOPENIC PURPURA
     Dosage: 5MG UNTIL WEEK 5+1, THEN PAUSE;100MG FOR 3 DAYS, FROM THEN 40MG-20MG/D, FROM WEEK 8: 10MG/D.
     Route: 064
  2. FUROSEMID [Suspect]
     Indication: GLOMERULONEPHRITIS
     Dosage: MATERNAL DOSE: 80 [MG/D ]/ -? BEI BEDARF, 40  BIS 80 MG/D
     Route: 064
  3. TORASEMIDE [Suspect]
     Dosage: MATERNAL DOSE: 40 [MG/D ]/ BIS 20 MG/D
     Route: 064
  4. FLUVASTATIN [Suspect]
     Indication: HYPERCHOLESTEROLAEMIA
     Dosage: MATERNAL DOSE: 20 [MG/D ]
     Route: 064
  5. RAMIPRIL [Suspect]
     Indication: GLOMERULONEPHRITIS
     Dosage: MATERNAL DOSE: 2.5 [MG/D ]
     Route: 064
  6. PROGRAF [Suspect]
     Indication: NEPHROTIC SYNDROME
     Dosage: 2 [MG/D ]/ -?;  TO 1 MG/D. WE PRESUME THAT TACROLILMUS WAS CONT. TAKEN UNTIL DELIVERY
     Route: 064
  7. OMEPRAZOLE [Concomitant]
     Indication: GASTRITIS PROPHYLAXIS
     Dosage: MATERNAL DOSE: 40 [MG/D ]/ -?
     Route: 064
  8. IDEOS [Concomitant]
     Indication: OSTEOPOROSIS PROPHYLAXIS
     Dosage: 1000 [MG/D ] / 20 [?G/D ]/ KEINE GENAUEREN ANGABEN
     Route: 064
  9. FOLSAEURE [Concomitant]
     Indication: PROPHYLAXIS OF NEURAL TUBE DEFECT
     Dosage: MATERNAL DOSE: 5 [MG/D ]/ -?
     Route: 064

REACTIONS (7)
  - Dysmorphism [Unknown]
  - Talipes [Unknown]
  - Cleft palate [Unknown]
  - Patent ductus arteriosus [Unknown]
  - Atrial septal defect [Unknown]
  - Premature baby [Recovering/Resolving]
  - Limb reduction defect [Not Recovered/Not Resolved]
